FAERS Safety Report 6121899-7 (Version None)
Quarter: 2009Q1

REPORT INFORMATION
  Report Type: 
  Country: None (occurrence: None)
  Receive Date: 20090317
  Receipt Date: 20090304
  Transmission Date: 20090719
  Serious: Yes (Death)
  Sender: FDA-Public Use
  Company Number: PL-PFIZER INC-2009163121

PATIENT

DRUGS (5)
  1. EPIRUBICIN HCL [Suspect]
     Dosage: EVERY 3 WEEKS
  2. ETOPOSIDE [Suspect]
     Dosage: EVERY 3 WEEKS
  3. CISPLATIN [Suspect]
     Dosage: EVERY 3 WEEKS
  4. CYCLOPHOSPHAMIDE [Suspect]
     Dosage: EVERY 3 WEEKS
  5. IFOSFAMIDE [Suspect]
     Dosage: EVERY 3 WEEKS

REACTIONS (2)
  - DISEASE PROGRESSION [None]
  - NEPHROBLASTOMA [None]
